FAERS Safety Report 7830589-1 (Version None)
Quarter: 2011Q4

REPORT INFORMATION
  Report Type: 
  Country: None (occurrence: None)
  Receive Date: 20111021
  Receipt Date: 20111017
  Transmission Date: 20120403
  Serious: Yes (Other)
  Sender: FDA-Public Use
  Company Number: US-PFIZER INC-2011249158

PATIENT
  Sex: Female
  Weight: 69.4 kg

DRUGS (3)
  1. LYRICA [Suspect]
     Indication: NECK PAIN
     Dosage: 50 MG, 1X/DAY
     Route: 048
     Dates: start: 20111005, end: 20111006
  2. OXYBUTYNIN [Concomitant]
     Dosage: UNK
  3. PERCOCET [Concomitant]
     Dosage: 5/325 MG, UNK

REACTIONS (3)
  - MICTURITION FREQUENCY DECREASED [None]
  - RENAL PAIN [None]
  - CHROMATURIA [None]
